FAERS Safety Report 7525311-2 (Version None)
Quarter: 2011Q2

REPORT INFORMATION
  Report Type: 
  Country: None (occurrence: None)
  Receive Date: 20110606
  Receipt Date: 20110526
  Transmission Date: 20111010
  Serious: Yes (Disabling)
  Sender: FDA-Public Use
  Company Number: US-ASTRAZENECA-2011SE11175

PATIENT
  Age: 48 Year
  Sex: Male
  Weight: 101.6 kg

DRUGS (6)
  1. METFORMIN HCL [Concomitant]
     Route: 048
  2. SEROQUEL [Suspect]
     Route: 048
  3. SEROQUEL [Suspect]
     Dosage: 300 MG TID AND 25 QID PRN
     Route: 048
  4. EFFEXOR [Concomitant]
     Route: 048
  5. SEROQUEL [Suspect]
     Dosage: HALF TABLET TID AND 300 MG HS
     Route: 048
  6. SEROQUEL [Suspect]
     Indication: DEMENTIA
     Dosage: QID, TOTAL DAILY DOSE 300 MG
     Route: 048
     Dates: start: 20090101

REACTIONS (10)
  - APHASIA [None]
  - DISABILITY [None]
  - DIABETES MELLITUS [None]
  - ABASIA [None]
  - WEIGHT INCREASED [None]
  - OFF LABEL USE [None]
  - OVERDOSE [None]
  - WEIGHT DECREASED [None]
  - INCONTINENCE [None]
  - DYSGRAPHIA [None]
